FAERS Safety Report 6472301-7 (Version None)
Quarter: 2009Q4

REPORT INFORMATION
  Report Type: 
  Country: None (occurrence: None)
  Receive Date: 20091203
  Receipt Date: 20081103
  Transmission Date: 20100525
  Serious: Yes (Hospitalization)
  Sender: FDA-Public Use
  Company Number: HU-GENENTECH-271263

PATIENT
  Sex: Male

DRUGS (2)
  1. RSHAPO2L-TRAIL [Suspect]
     Indication: NON-SMALL CELL LUNG CANCER
     Dosage: 1 UNK, Q3W
     Route: 042
     Dates: start: 20080722
  2. AVASTIN [Suspect]
     Indication: NON-SMALL CELL LUNG CANCER
     Dosage: 1 UNK, Q3W
     Route: 042
     Dates: start: 20080722

REACTIONS (1)
  - ANAEMIA [None]
